FAERS Safety Report 10733306 (Version 1)
Quarter: 2015Q1

REPORT INFORMATION
  Report Type: Spontaneous
  Country: US (occurrence: None)
  Receive Date: 20150120
  Receipt Date: 20150120
  Transmission Date: 20150721
  Serious: Yes (Other)
  Sender: FDA-Public Use
  Company Number: INT_00632_2015

PATIENT
  Age: 51 Year
  Sex: Female

DRUGS (2)
  1. CISPLATIN (HQ SPECIALTY) [Suspect]
     Active Substance: CISPLATIN
     Indication: ANAL CANCER STAGE IV
     Dosage: DF
  2. 5 FLUOROURACIL /00098801/ [Suspect]
     Active Substance: FLUOROURACIL
     Indication: ANAL CANCER STAGE IV
     Dosage: DF

REACTIONS (1)
  - Marchiafava-Bignami disease [None]
